FAERS Safety Report 9157700 (Version 3)
Quarter: 2013Q1

REPORT INFORMATION
  Report Type: Spontaneous
  Country: JP (occurrence: None)
  Receive Date: 20130211
  Receipt Date: 20130325
  Transmission Date: 20140127
  Serious: Yes (Hospitalization, Other)
  Sender: FDA-Public Use
  Company Number: 2013-012907

PATIENT
  Age: 64 Year
  Sex: Female
  Weight: 67 kg

DRUGS (9)
  1. AFLIBERCEPT (AFLIBERCEPT SOLUTION FOR INJECTION [Suspect]
     Indication: DIABETIC RETINAL OEDEMA
     Route: 031
     Dates: start: 20120529, end: 20120529
  2. HUMALOG MIX [Concomitant]
  3. OLMETEC [Concomitant]
  4. CORTRIL [Concomitant]
  5. VILDAGLIPTIN [Concomitant]
  6. HIRNAMIN [Concomitant]
  7. TETRAMIDE [Concomitant]
  8. ABILIFY [Concomitant]
  9. RIVOTRIL [Concomitant]

REACTIONS (18)
  - Acute myocardial infarction [None]
  - Malaise [None]
  - Cyanosis [None]
  - Cardiac failure congestive [None]
  - Renal failure [None]
  - Continuous haemodiafiltration [None]
  - Chills [None]
  - Blood pressure increased [None]
  - Pulmonary arterial pressure increased [None]
  - Pulmonary congestion [None]
  - Pleural effusion [None]
  - Diabetic nephropathy [None]
  - Nasopharyngitis [None]
  - Coronary artery stenosis [None]
  - Blood albumin decreased [None]
  - C-reactive protein increased [None]
  - Infection [None]
  - Coronary artery disease [None]
